FAERS Safety Report 5148591-X (Version None)
Quarter: 2006Q4

REPORT INFORMATION
  Report Type: 
  Country: None (occurrence: None)
  Receive Date: 20061107
  Receipt Date: 20061026
  Transmission Date: 20070319
  Serious: Yes (Death, Hospitalization)
  Sender: FDA-Public Use
  Company Number: 2006JP001914

PATIENT
  Age: 55 Year
  Sex: Male
  Weight: 44 kg

DRUGS (13)
  1. FUNGUARD (MICAFUNGIN)INJECTION [Suspect]
     Indication: BRONCHOPULMONARY ASPERGILLOSIS
     Dosage: 150 MG, /D, IV DRIP; 100 MG, UID/QD, IV DRIP
     Route: 041
     Dates: start: 20060625, end: 20060626
  2. FUNGUARD (MICAFUNGIN)INJECTION [Suspect]
     Indication: BRONCHOPULMONARY ASPERGILLOSIS
     Dosage: 150 MG, /D, IV DRIP; 100 MG, UID/QD, IV DRIP
     Route: 041
     Dates: start: 20051027
  3. LASIX [Concomitant]
  4. LASIX (FUROSEMIDE) INJECTION [Concomitant]
  5. ALDACTONE-A TABLET [Concomitant]
  6. SOLDACTONE (POTASSIUM CANRENOATE) INJECTION [Concomitant]
  7. AMARYL [Concomitant]
  8. GASTER D ORODISPERDABLE CR TABLET [Concomitant]
  9. BASEN (VOGLIBOSE) ORODISPERSABLE CR TABLET [Concomitant]
  10. LIVACT (AMINO ACIDS NOS) GRANULE [Concomitant]
  11. URSO (URSODEOXYCHOLIC ACID) TABLET [Concomitant]
  12. SELBEX (FUROSEMIDE) GRANULE [Concomitant]
  13. AMINOLEBAN (AMINO ACIDS NOS) INJECTION [Concomitant]

REACTIONS (20)
  - BLOOD PRESSURE DECREASED [None]
  - BLOOD PRESSURE IMMEASURABLE [None]
  - BRONCHOPULMONARY ASPERGILLOSIS [None]
  - CONDITION AGGRAVATED [None]
  - DIABETES MELLITUS [None]
  - DIABETES MELLITUS INADEQUATE CONTROL [None]
  - DYSPHORIA [None]
  - ELECTROCARDIOGRAM ABNORMAL [None]
  - HEART RATE DECREASED [None]
  - LIVER DISORDER [None]
  - LOSS OF CONSCIOUSNESS [None]
  - LUNG INFILTRATION [None]
  - MYDRIASIS [None]
  - NAUSEA [None]
  - OXYGEN SATURATION DECREASED [None]
  - PERIPHERAL COLDNESS [None]
  - PYREXIA [None]
  - SEPSIS [None]
  - UPPER GASTROINTESTINAL HAEMORRHAGE [None]
  - VARICOSE VEIN [None]
